FAERS Safety Report 7989626-6 (Version None)
Quarter: 2011Q4

REPORT INFORMATION
  Report Type: 
  Country: None (occurrence: None)
  Receive Date: 20111215
  Receipt Date: 20111128
  Transmission Date: 20120403
  Serious: Yes (Hospitalization)
  Sender: FDA-Public Use
  Company Number: 21235225-2011-00157

PATIENT
  Age: 32 Year
  Sex: Female

DRUGS (1)
  1. ASCLERA [Suspect]
     Indication: SCLEROTHERAPY
     Dosage: 8CC, I.V.
     Route: 042
     Dates: start: 20111125

REACTIONS (5)
  - NAUSEA [None]
  - VISION BLURRED [None]
  - HYPOAESTHESIA [None]
  - VOMITING [None]
  - HEADACHE [None]
